FAERS Safety Report 9847503 (Version 1)
Quarter: 2014Q1

REPORT INFORMATION
  Report Type: Report from Study
  Country: US (occurrence: US)
  Receive Date: 20140127
  Receipt Date: 20140127
  Transmission Date: 20141002
  Serious: Yes (Other)
  Sender: FDA-Public Use
  Company Number: US-ROCHE-1337689

PATIENT
  Age: 14 Year
  Sex: Male
  Weight: 70.1 kg

DRUGS (1)
  1. NUTROPIN [Suspect]
     Indication: GROWTH HORMONE DEFICIENCY
     Route: 058

REACTIONS (4)
  - Growth retardation [Unknown]
  - Stress fracture [Unknown]
  - Cough [Unknown]
  - Arthralgia [Unknown]
